FAERS Safety Report 7095270-8 (Version None)
Quarter: 2010Q4

REPORT INFORMATION
  Report Type: 
  Country: None (occurrence: None)
  Receive Date: 20101102
  Receipt Date: 20101019
  Transmission Date: 20110411
  Serious: Yes (Other)
  Sender: FDA-Public Use
  Company Number: 1000016804

PATIENT
  Age: 19 Year
  Sex: Male
  Weight: 43 kg

DRUGS (8)
  1. CITALOPRAM HYDROBROMIDE [Suspect]
     Indication: DEPRESSION
     Dosage: 8 MG (8 MG,1 IN 1 D),ORAL ; 6 MG (6 MG,1 IN 1 D),ORAL ; 4 MG (4 MG,1 IN 1 D),ORAL
     Route: 048
     Dates: start: 20100115, end: 20100116
  2. CITALOPRAM HYDROBROMIDE [Suspect]
     Indication: DEPRESSION
     Dosage: 8 MG (8 MG,1 IN 1 D),ORAL ; 6 MG (6 MG,1 IN 1 D),ORAL ; 4 MG (4 MG,1 IN 1 D),ORAL
     Route: 048
     Dates: start: 20100117, end: 20100117
  3. CITALOPRAM HYDROBROMIDE [Suspect]
     Indication: DEPRESSION
     Dosage: 8 MG (8 MG,1 IN 1 D),ORAL ; 6 MG (6 MG,1 IN 1 D),ORAL ; 4 MG (4 MG,1 IN 1 D),ORAL
     Route: 048
     Dates: start: 20100118, end: 20100119
  4. CITALOPRAM HYDROBROMIDE [Suspect]
     Indication: DEPRESSION
     Dosage: 2 MG (2 MG,1 IN 1 D),ORAL
     Route: 048
     Dates: start: 20100120, end: 20100121
  5. SODIUM VALPROATE (VALPROATE SODIUM) (TABLETS) (VALPROATE SODIUM) [Concomitant]
  6. ITOPRIDE HYDROCHLORIDE(ITOPRIDE HYDROCHLORIDE) (TABLETS) (ITOPRIDEHYDR [Concomitant]
  7. OMEPRAZOL (OMEPRAZOLE) (TABLETS) (OMEPRAZOLE) [Concomitant]
  8. DILTIAZEM HYDROCHLORIDE (DILTIAZEM HYDROCHLORIDE) (TABLETS) (DILTIAZEM [Concomitant]

REACTIONS (3)
  - CONVULSION [None]
  - MUSCULOSKELETAL STIFFNESS [None]
  - MYDRIASIS [None]
